FAERS Safety Report 4416048-7 (Version None)
Quarter: 2004Q3

REPORT INFORMATION
  Report Type: 
  Country: None (occurrence: None)
  Receive Date: 20040802
  Receipt Date: 20040719
  Transmission Date: 20050211
  Serious: Yes (Hospitalization)
  Sender: FDA-Public Use
  Company Number: 2004048774

PATIENT
  Age: 22 Year
  Sex: Female
  Weight: 60 kg

DRUGS (2)
  1. ZITHROMAX [Suspect]
     Indication: PHARYNGOLARYNGEAL PAIN
     Dosage: ORAL
     Route: 048
     Dates: start: 20040211
  2. VALACYCLOVIR HCL [Suspect]
     Indication: ILL-DEFINED DISORDER
     Dosage: (1 IN 1 D), ORAL
     Route: 048
     Dates: start: 20040216

REACTIONS (14)
  - C-REACTIVE PROTEIN INCREASED [None]
  - ERYTHEMA [None]
  - EYE IRRITATION [None]
  - HERPES VIRUS INFECTION [None]
  - INFLAMMATION [None]
  - LYMPHOPENIA [None]
  - MUCOSAL EROSION [None]
  - MUCOUS MEMBRANE DISORDER [None]
  - ORAL PAIN [None]
  - RASH PAPULAR [None]
  - RED BLOOD CELL SEDIMENTATION RATE INCREASED [None]
  - STOMATITIS [None]
  - SYMBLEPHARON [None]
  - VULVAR EROSION [None]
